FAERS Safety Report 18309004 (Version 1)
Quarter: 2020Q3

REPORT INFORMATION
  Report Type: Spontaneous
  Country: US (occurrence: US)
  Receive Date: 20200924
  Receipt Date: 20200924
  Transmission Date: 20201103
  Serious: Yes (Life-Threatening, Hospitalization)
  Sender: FDA-Public Use
  Company Number: US-MYLANLABS-2020M1080759

PATIENT
  Age: 30 Year
  Sex: Female

DRUGS (18)
  1. BUPIVACAINE. [Suspect]
     Active Substance: BUPIVACAINE
     Dosage: GRADUAL TITRATION TO 8 ML/H AS ACTIVE LABOR PROGRESSED.
     Route: 040
  2. FENTANYL. [Suspect]
     Active Substance: FENTANYL
     Indication: ANAESTHESIA
     Dosage: 2 MG/ML OF FENTANYL RUNNING AT 2 ML/HOUR
     Route: 008
  3. OXYTOCIN. [Suspect]
     Active Substance: OXYTOCIN
     Indication: UTERINE CONTRACTIONS DURING PREGNANCY
     Dosage: 40 UNITS OVER 30 MINUTES
     Route: 042
  4. EPOPROSTENOL. [Suspect]
     Active Substance: EPOPROSTENOL
     Indication: RIGHT-TO-LEFT CARDIAC SHUNT
     Dosage: VIA A PERIPHERALLY INSERTED CENTRAL VENOUS CATHETER 1NG/KG/MIN
     Route: 042
  5. EPOPROSTENOL. [Suspect]
     Active Substance: EPOPROSTENOL
     Dosage: 17 NG/KG/MIN OVER A 2?WEEK
     Route: 042
  6. CHLOROPROCAINE [Suspect]
     Active Substance: CHLOROPROCAINE
     Indication: ANAESTHESIA
     Dosage: 7 MILLILITER
     Route: 008
  7. CHLOROPROCAINE [Suspect]
     Active Substance: CHLOROPROCAINE
     Dosage: ADDITIONAL BOLUSES OF 15 ML
     Route: 008
  8. ROPIVACAINE. [Suspect]
     Active Substance: ROPIVACAINE HYDROCHLORIDE
     Indication: ANAESTHESIA
     Route: 008
  9. BUPIVACAINE. [Suspect]
     Active Substance: BUPIVACAINE
     Indication: ANAESTHESIA
     Dosage: BOLUSES OF 2 TO 4 ML
     Route: 008
  10. SILDENAFIL. [Suspect]
     Active Substance: SILDENAFIL
     Dosage: 3 TIMES PER DAY PRESCRIBED AT THE TIME OF DISCHARGE
     Route: 065
  11. TREPROSTINIL. [Suspect]
     Active Substance: TREPROSTINIL
     Indication: RIGHT-TO-LEFT CARDIAC SHUNT
     Dosage: UNK
  12. TREPROSTINIL. [Suspect]
     Active Substance: TREPROSTINIL
     Dosage: 9 PUFFS
  13. SILDENAFIL. [Suspect]
     Active Substance: SILDENAFIL
     Indication: RIGHT-TO-LEFT CARDIAC SHUNT
     Dosage: UNK
     Route: 048
  14. BETAMETHASONE. [Suspect]
     Active Substance: BETAMETHASONE
     Indication: MATERNAL THERAPY TO ENHANCE FOETAL LUNG MATURITY
     Dosage: UNK
     Route: 065
  15. HEPARIN [Suspect]
     Active Substance: HEPARIN SODIUM
     Indication: ANTICOAGULANT THERAPY
     Dosage: 7500 INTERNATIONAL UNIT, BID
     Route: 058
  16. ENOXAPARIN [Suspect]
     Active Substance: ENOXAPARIN
     Indication: RIGHT-TO-LEFT CARDIAC SHUNT
  17. HEPARIN [Suspect]
     Active Substance: HEPARIN SODIUM
     Indication: RIGHT-TO-LEFT CARDIAC SHUNT
  18. ENOXAPARIN [Suspect]
     Active Substance: ENOXAPARIN
     Indication: ANTICOAGULANT THERAPY
     Dosage: 40 MILLIGRAM, QD
     Route: 065

REACTIONS (4)
  - Maternal exposure during pregnancy [Recovered/Resolved]
  - Hypovolaemia [Recovering/Resolving]
  - Vasodilatation [Recovering/Resolving]
  - Haemodynamic instability [Recovering/Resolving]
